FAERS Safety Report 6048647-3 (Version None)
Quarter: 2009Q1

REPORT INFORMATION
  Report Type: 
  Country: None (occurrence: None)
  Receive Date: 20090123
  Receipt Date: 20090115
  Transmission Date: 20090719
  Serious: Yes (Other)
  Sender: FDA-Public Use
  Company Number: US-ELI_LILLY_AND_COMPANY-US200901002425

PATIENT
  Sex: Female

DRUGS (3)
  1. HUMALOG [Suspect]
     Dosage: UNK, UNK
     Dates: start: 20000101
  2. ANTIBIOTICS [Concomitant]
  3. CORTICOSTEROIDS [Concomitant]

REACTIONS (3)
  - BLOOD GLUCOSE INCREASED [None]
  - LUNG DISORDER [None]
  - STRESS [None]
